FAERS Safety Report 5734596-4 (Version None)
Quarter: 2008Q2

REPORT INFORMATION
  Report Type: 
  Country: None (occurrence: None)
  Receive Date: 20080508
  Receipt Date: 20080508
  Transmission Date: 20081010
  Serious: Yes (Other)
  Sender: FDA-Public Use
  Company Number: None

PATIENT
  Sex: Male
  Weight: 90.7194 kg

DRUGS (1)
  1. DIGITEK 0.125 MYLAND PHARMACEUTICALS [Suspect]
     Dosage: 1 DAY PO
     Route: 048
     Dates: start: 20080121, end: 20080422

REACTIONS (6)
  - DIZZINESS [None]
  - FALL [None]
  - FATIGUE [None]
  - LIMB INJURY [None]
  - PHARMACEUTICAL PRODUCT COMPLAINT [None]
  - POOR QUALITY DRUG ADMINISTERED [None]
